FAERS Safety Report 19268230 (Version 1)
Quarter: 2021Q2

REPORT INFORMATION
  Report Type: Spontaneous
  Country: FR (occurrence: FR)
  Receive Date: 20210517
  Receipt Date: 20210517
  Transmission Date: 20210717
  Serious: Yes (Hospitalization)
  Sender: FDA-Public Use
  Company Number: FR-PFIZER INC-2021496146

PATIENT
  Age: 86 Year
  Sex: Male

DRUGS (1)
  1. SUTENT [Suspect]
     Active Substance: SUNITINIB MALATE
     Dosage: 37.5 MG, DAILY
     Route: 048
     Dates: start: 20200915, end: 20210302

REACTIONS (4)
  - Oesophagitis [Recovering/Resolving]
  - Mucosal inflammation [Recovering/Resolving]
  - Gastrointestinal haemorrhage [Recovered/Resolved]
  - Duodenitis [Recovering/Resolving]

NARRATIVE: CASE EVENT DATE: 20210302
